FAERS Safety Report 19233393 (Version 4)
Quarter: 2022Q2

REPORT INFORMATION
  Report Type: Spontaneous
  Country: US (occurrence: US)
  Receive Date: 20210507
  Receipt Date: 20220621
  Transmission Date: 20220721
  Serious: No
  Sender: FDA-Public Use
  Company Number: US-PFIZER INC-2020364783

PATIENT
  Age: 70 Year
  Sex: Female

DRUGS (3)
  1. XELJANZ [Suspect]
     Active Substance: TOFACITINIB CITRATE
     Indication: Rheumatoid arthritis
     Dosage: 5 MG, 2X/DAY
     Route: 048
     Dates: start: 202012
  2. XELJANZ [Suspect]
     Active Substance: TOFACITINIB CITRATE
     Indication: Morphoea
  3. ESTRADIOL [Concomitant]
     Active Substance: ESTRADIOL
     Indication: Oophorectomy
     Dosage: UNK

REACTIONS (1)
  - Fatigue [Unknown]

NARRATIVE: CASE EVENT DATE: 20200101
